FAERS Safety Report 12381799 (Version 2)
Quarter: 2016Q2

REPORT INFORMATION
  Report Type: Spontaneous
  Country: US (occurrence: US)
  Receive Date: 20160518
  Receipt Date: 20160620
  Transmission Date: 20160815
  Serious: No
  Sender: FDA-Public Use
  Company Number: US-ACTELION-A-US2016-136198

PATIENT
  Age: 76 Year
  Sex: Male
  Weight: 80.73 kg

DRUGS (2)
  1. UPTRAVI [Suspect]
     Active Substance: SELEXIPAG
     Dosage: 200 MCG, BID
     Route: 048
  2. UPTRAVI [Suspect]
     Active Substance: SELEXIPAG
     Indication: PULMONARY ARTERIAL HYPERTENSION
     Dosage: 400 MCG, BID
     Route: 048
     Dates: start: 20160426

REACTIONS (6)
  - Diarrhoea [Unknown]
  - Headache [Unknown]
  - Paraesthesia [Unknown]
  - Hypoaesthesia [Unknown]
  - Pain in jaw [Unknown]
  - Feeling abnormal [Unknown]
